FAERS Safety Report 9901098 (Version 4)
Quarter: 2014Q1

REPORT INFORMATION
  Report Type: Spontaneous
  Country: US (occurrence: US)
  Receive Date: 20140217
  Receipt Date: 20140317
  Transmission Date: 20141002
  Serious: Yes (Other)
  Sender: FDA-Public Use
  Company Number: US-PFIZER INC-2014039049

PATIENT
  Sex: Female
  Weight: 62.59 kg

DRUGS (2)
  1. PREMARIN [Suspect]
     Dosage: UNK
  2. PROVERA [Suspect]
     Dosage: UNK

REACTIONS (6)
  - Aphagia [Unknown]
  - Functional gastrointestinal disorder [Unknown]
  - Weight decreased [Unknown]
  - Malaise [Unknown]
  - Hormone level abnormal [Unknown]
  - Dyspepsia [Unknown]
